FAERS Safety Report 5769315-9 (Version None)
Quarter: 2008Q2

REPORT INFORMATION
  Report Type: 
  Country: None (occurrence: None)
  Receive Date: 20080610
  Receipt Date: 20080530
  Transmission Date: 20081010
  Serious: Yes (Hospitalization)
  Sender: FDA-Public Use
  Company Number: 2008014097

PATIENT
  Age: 65 Year
  Sex: Male
  Weight: 106.5953 kg

DRUGS (2)
  1. SUDAFED S.A. [Suspect]
     Indication: HYPERSENSITIVITY
     Dosage: 2 TABLETS 1 X A DAY, ORAL
     Route: 048
     Dates: start: 20080509, end: 20080526
  2. BETA BLOCKER/SOTALOL HCL (SOTALOL HYDROCHLORIDE) [Concomitant]

REACTIONS (2)
  - HEART RATE INCREASED [None]
  - HYPERTENSION [None]
